FAERS Safety Report 6301332-2 (Version None)
Quarter: 2009Q3

REPORT INFORMATION
  Report Type: 
  Country: None (occurrence: None)
  Receive Date: 20090807
  Receipt Date: 20090731
  Transmission Date: 20100115
  Serious: Yes (Other)
  Sender: FDA-Public Use
  Company Number: PE-PFIZER INC-2009243893

PATIENT
  Age: 50 Year

DRUGS (2)
  1. LYRICA [Suspect]
     Indication: NEURALGIA
     Dosage: 75 MG, 2X/DAY
     Route: 048
  2. CELECOXIB [Suspect]
     Indication: CARPAL TUNNEL SYNDROME
     Dosage: UNK

REACTIONS (1)
  - AMNESIA [None]
